FAERS Safety Report 25142111 (Version 1)
Quarter: 2025Q1

REPORT INFORMATION
  Report Type: Spontaneous
  Country: DE (occurrence: DE)
  Receive Date: 20250331
  Receipt Date: 20250331
  Transmission Date: 20250408
  Serious: Yes (Other)
  Sender: MYLAN
  Company Number: None

PATIENT
  Age: 30 Year
  Sex: Male
  Weight: 72 kg

DRUGS (2)
  1. MIRTAZAPINE [Suspect]
     Active Substance: MIRTAZAPINE
     Indication: Depression
     Dates: start: 20161201, end: 20180401
  2. MIRTAZAPINE [Suspect]
     Active Substance: MIRTAZAPINE
     Indication: Sleep disorder

REACTIONS (11)
  - Suicidal ideation [Recovered/Resolved with Sequelae]
  - Cognitive disorder [Recovered/Resolved with Sequelae]
  - Sleep disorder [Recovered/Resolved with Sequelae]
  - Tinnitus [Recovered/Resolved with Sequelae]
  - Memory impairment [Recovered/Resolved with Sequelae]
  - Depression [Recovered/Resolved with Sequelae]
  - Apathy [Recovered/Resolved with Sequelae]
  - Photosensitivity reaction [Recovered/Resolved with Sequelae]
  - Lethargy [Recovered/Resolved with Sequelae]
  - Anxiety [Recovered/Resolved with Sequelae]
  - Drug ineffective [Unknown]

NARRATIVE: CASE EVENT DATE: 20161201
